FAERS Safety Report 5810755-7 (Version None)
Quarter: 2008Q3

REPORT INFORMATION
  Report Type: 
  Country: None (occurrence: None)
  Receive Date: 20080715
  Receipt Date: 20080612
  Transmission Date: 20090109
  Serious: Yes (Life-Threatening, Hospitalization)
  Sender: FDA-Public Use
  Company Number: PL-MERCK-0806USA07654

PATIENT
  Age: 59 Year
  Sex: Male

DRUGS (2)
  1. HYDRODIURIL [Suspect]
     Indication: HYPERTENSION
     Route: 048
  2. AMLODIPINE BESYLATE [Concomitant]
     Route: 065

REACTIONS (11)
  - ANOREXIA [None]
  - ASTHENIA [None]
  - EXTENSOR PLANTAR RESPONSE [None]
  - EXTRAPYRAMIDAL DISORDER [None]
  - HYPONATRAEMIA [None]
  - INAPPROPRIATE ANTIDIURETIC HORMONE SECRETION [None]
  - MUSCULAR WEAKNESS [None]
  - NAUSEA [None]
  - REFLEXES ABNORMAL [None]
  - TREMOR [None]
  - TRIGEMINAL NEURALGIA [None]
